FAERS Safety Report 9781547 (Version 1)
Quarter: 2013Q4

REPORT INFORMATION
  Report Type: Spontaneous
  Country: US (occurrence: None)
  Receive Date: 20131223
  Receipt Date: 20131223
  Transmission Date: 20140711
  Serious: Yes (Hospitalization)
  Sender: FDA-Public Use
  Company Number: None

PATIENT
  Sex: 0

DRUGS (2)
  1. FENTANYL [Suspect]
     Indication: PAIN
     Route: 061
     Dates: start: 20101006, end: 20131205
  2. MORPHINE [Suspect]
     Indication: PAIN
     Route: 048

REACTIONS (1)
  - Mental status changes [None]
